FAERS Safety Report 24554897 (Version 2)
Quarter: 2025Q3

REPORT INFORMATION
  Report Type: Report from Study
  Country: CO (occurrence: CO)
  Receive Date: 20241028
  Receipt Date: 20250803
  Transmission Date: 20251021
  Serious: Yes (Death, Other)
  Sender: ALEXION PHARMACEUTICALS
  Company Number: CO-AstraZeneca-CH-00719479A

PATIENT
  Age: 81 Year
  Sex: Female

DRUGS (1)
  1. ACALABRUTINIB [Suspect]
     Active Substance: ACALABRUTINIB
     Indication: Chronic lymphocytic leukaemia
     Dosage: 100 MILLIGRAM, Q12D
     Dates: start: 20240616, end: 20240929

REACTIONS (4)
  - Palpitations [Fatal]
  - Death [Fatal]
  - Generalised oedema [Fatal]
  - Ecchymosis [Fatal]

NARRATIVE: CASE EVENT DATE: 20240929
